FAERS Safety Report 8218657-6 (Version None)
Quarter: 2012Q1

REPORT INFORMATION
  Report Type: 
  Country: None (occurrence: None)
  Receive Date: 20120319
  Receipt Date: 20120312
  Transmission Date: 20120608
  Serious: Yes (Life-Threatening, Other)
  Sender: FDA-Public Use
  Company Number: PHHY2008CA20966

PATIENT
  Sex: Female

DRUGS (3)
  1. EXJADE [Concomitant]
  2. PANTOPRAZOLE SODIUM [Concomitant]
     Indication: GASTROOESOPHAGEAL REFLUX DISEASE
     Dosage: 40 MG, UNK
  3. DESFERAL [Suspect]
     Indication: APLASTIC ANAEMIA
     Dosage: 4 MG, QD
     Route: 058

REACTIONS (3)
  - SEPSIS [None]
  - BACTERAEMIA [None]
  - NEUTROPENIA [None]
